FAERS Safety Report 9120095 (Version 1)
Quarter: 2013Q1

REPORT INFORMATION
  Report Type: Spontaneous
  Country: US (occurrence: US)
  Receive Date: 20130226
  Receipt Date: 20130226
  Transmission Date: 20140127
  Serious: No
  Sender: FDA-Public Use
  Company Number: US-TARO-2012P1037750

PATIENT
  Age: 65 Year
  Sex: Female
  Weight: 58.97 kg

DRUGS (5)
  1. TERCONAZOLE VAGINAL CREAM 0.8% [Suspect]
     Dates: start: 201202
  2. TARCEVA [Concomitant]
     Route: 048
  3. FLECAINIDE [Concomitant]
     Route: 048
  4. DILTIAZEM [Concomitant]
     Route: 048
  5. VALTREX [Concomitant]
     Route: 048

REACTIONS (2)
  - Fungal infection [Recovered/Resolved]
  - Bacterial infection [Recovered/Resolved]
